FAERS Safety Report 4624033-5 (Version None)
Quarter: 2005Q1

REPORT INFORMATION
  Report Type: 
  Country: None (occurrence: None)
  Receive Date: 20050329
  Receipt Date: 20050316
  Transmission Date: 20050727
  Serious: Yes (Hospitalization, Disabling, Other)
  Sender: FDA-Public Use
  Company Number: 2004205504FR

PATIENT
  Age: 16 Year
  Sex: Female

DRUGS (7)
  1. ATARAX [Suspect]
     Indication: ILL-DEFINED DISORDER
     Dates: start: 20010706
  2. SOLU-MEDROL [Suspect]
     Indication: ILL-DEFINED DISORDER
     Dosage: 40 MG (40 MG, 1 IN 1 D); INTRAVENOUS
     Route: 042
     Dates: start: 20010706
  3. AMOXICILLIN [Suspect]
     Indication: ILL-DEFINED DISORDER
     Dosage: (2 GRAM, 1 IN 1 D),
  4. MIVACURIUM CHLORIDE (MIVACURIUM CHLORIDE) [Suspect]
     Indication: ILL-DEFINED DISORDER
     Dosage: 4 MG (4 MG, UNKNOWN); INTRAVENOUS
     Route: 042
     Dates: start: 20010706, end: 20010706
  5. PROPOFOL [Suspect]
     Indication: ILL-DEFINED DISORDER
     Dosage: 100 MG (100 MG, 1 IN 1D); INTRAVENOUS
     Route: 042
     Dates: start: 20010706, end: 20010706
  6. PROPACETAMOL HYDROCHLORIDE (PROPACETAMOL HYDROCHLORIDE) [Suspect]
     Indication: ILL-DEFINED DISORDER
     Dosage: 2 GRAM (2 GRAM, 1 IN 1 D); INTRAVENOUS
     Route: 042
     Dates: start: 20010706, end: 20010706
  7. ALFENTANIL [Concomitant]

REACTIONS (8)
  - BRADYCARDIA [None]
  - BRAIN OEDEMA [None]
  - BRONCHOSPASM [None]
  - CEREBRAL ISCHAEMIA [None]
  - COMA [None]
  - CYANOSIS [None]
  - OXYGEN SATURATION DECREASED [None]
  - VENTRICULAR FIBRILLATION [None]
